FAERS Safety Report 11613640 (Version 5)
Quarter: 2016Q3

REPORT INFORMATION
  Report Type: Spontaneous
  Country: JP (occurrence: JP)
  Receive Date: 20151008
  Receipt Date: 20160826
  Transmission Date: 20161109
  Serious: Yes (Life-Threatening, Hospitalization, Other)
  Sender: FDA-Public Use
  Company Number: JP-GLAXOSMITHKLINE-JP2015JPN142003

PATIENT
  Age: 32 Year
  Sex: Female
  Weight: 53 kg

DRUGS (7)
  1. ZITHROMAC [Suspect]
     Active Substance: AZITHROMYCIN DIHYDRATE
     Indication: ANTIBIOTIC PROPHYLAXIS
     Dosage: 500 MG, 1D
     Route: 048
     Dates: start: 20150918, end: 20150928
  2. ALLEGRA [Concomitant]
     Active Substance: FEXOFENADINE HYDROCHLORIDE
  3. LAMICTAL [Suspect]
     Active Substance: LAMOTRIGINE
     Dosage: 25 MG, QD
     Route: 048
     Dates: start: 20150916, end: 20150928
  4. MUCOSOLVAN [Concomitant]
     Active Substance: AMBROXOL HYDROCHLORIDE
  5. LAMICTAL [Suspect]
     Active Substance: LAMOTRIGINE
     Indication: EPILEPSY
     Dosage: 25 MG, QOD
     Route: 048
     Dates: start: 20150902, end: 20150915
  6. COUGHCODE-N [Concomitant]
     Active Substance: ACETAMINOPHEN\BROMISOVAL\DIHYDROCODEINE PHOSPHATE\DIPHENHYDRAMINE SALICYLATE\DYPHYLLINE\METHYLEPHEDRINE HYDROCHLORIDE, (+/-)-
  7. DEPAKENE [Concomitant]
     Active Substance: VALPROIC ACID
     Dosage: 300 MG, BID
     Dates: start: 20150902

REACTIONS (11)
  - Oral mucosa erosion [Recovering/Resolving]
  - Rash [Recovered/Resolved]
  - Dysgeusia [Recovering/Resolving]
  - Oral mucosa erosion [Recovering/Resolving]
  - Hepatic function abnormal [Recovered/Resolved]
  - Conjunctival hyperaemia [Recovering/Resolving]
  - Oculomucocutaneous syndrome [Recovering/Resolving]
  - Lip swelling [Recovering/Resolving]
  - Pyrexia [Recovered/Resolved]
  - Lip erosion [Recovering/Resolving]
  - Ocular hyperaemia [Recovering/Resolving]

NARRATIVE: CASE EVENT DATE: 20150918
